FAERS Safety Report 9115665 (Version 1)
Quarter: 2013Q1

REPORT INFORMATION
  Report Type: Spontaneous
  Country: US (occurrence: US)
  Receive Date: 20130225
  Receipt Date: 20130225
  Transmission Date: 20140127
  Serious: No
  Sender: FDA-Public Use
  Company Number: US-BRISTOL-MYERS SQUIBB COMPANY-17109687

PATIENT
  Sex: 0

DRUGS (2)
  1. KENALOG-10 INJ [Suspect]
     Dosage: INTRA-LESIONALLY
     Route: 030
  2. KENALOG-40 INJ [Suspect]
     Dosage: INTRA-LESIONALLY
     Route: 030

REACTIONS (1)
  - Medication error [Unknown]
